FAERS Safety Report 6645802-6 (Version None)
Quarter: 2010Q1

REPORT INFORMATION
  Report Type: 
  Country: None (occurrence: None)
  Receive Date: 20100323
  Receipt Date: 20100316
  Transmission Date: 20100710
  Serious: Yes (Death)
  Sender: FDA-Public Use
  Company Number: TR-ELI_LILLY_AND_COMPANY-TR201003004303

PATIENT
  Sex: Female

DRUGS (4)
  1. HUMULIN N [Suspect]
     Indication: DIABETES MELLITUS
     Dosage: 15 U, EACH MORNING
     Route: 058
     Dates: start: 19990101, end: 20090129
  2. HUMULIN N [Suspect]
     Dosage: 15 U, EACH EVENING
     Route: 058
     Dates: start: 19990101, end: 20090129
  3. ANTIHYPERTENSIVES [Concomitant]
     Indication: HYPERTENSION
     Dosage: UNK, UNKNOWN
     Route: 065
     Dates: end: 20090129
  4. VITAMINS [Concomitant]
     Dosage: UNK, UNKNOWN
     Route: 065
     Dates: end: 20090129

REACTIONS (1)
  - MYOCARDIAL INFARCTION [None]
